FAERS Safety Report 12703486 (Version 1)
Quarter: 2016Q3

REPORT INFORMATION
  Report Type: Spontaneous
  Country: US (occurrence: US)
  Receive Date: 20160831
  Receipt Date: 20160831
  Transmission Date: 20161109
  Serious: Yes (Hospitalization, Other)
  Sender: FDA-Public Use
  Company Number: US-SCIEGEN PHARMACEUTICALS INC-2016SCILIT00395

PATIENT
  Age: 36 Year
  Sex: Male

DRUGS (3)
  1. METFORMIN HYDROCHLORIDE TABLETS, USP [Suspect]
     Active Substance: METFORMIN HYDROCHLORIDE
     Indication: TYPE 2 DIABETES MELLITUS
     Dosage: 1 G, BID
     Route: 065
  2. CANAGLIFOZIN [Suspect]
     Active Substance: CANAGLIFLOZIN
     Indication: TYPE 2 DIABETES MELLITUS
     Dosage: 300 MG, QD
     Route: 065
  3. CANAGLIFOZIN [Suspect]
     Active Substance: CANAGLIFLOZIN
     Dosage: 100 MG, DAILY
     Route: 065

REACTIONS (8)
  - Fatigue [Recovering/Resolving]
  - Tachycardia [Recovering/Resolving]
  - Ketoacidosis [Recovered/Resolved]
  - Vomiting [Recovering/Resolving]
  - Headache [Recovering/Resolving]
  - Nausea [Recovering/Resolving]
  - Mucosal dryness [Recovering/Resolving]
  - Acanthosis nigricans [Recovering/Resolving]
